FAERS Safety Report 5566586-9 (Version None)
Quarter: 2007Q4

REPORT INFORMATION
  Report Type: 
  Country: None (occurrence: None)
  Receive Date: 20071219
  Receipt Date: 20071211
  Transmission Date: 20080405
  Serious: Yes (Other)
  Sender: FDA-Public Use
  Company Number: SA-JNJFOC-20071203207

PATIENT
  Age: 19 Year
  Sex: Female
  Weight: 60 kg

DRUGS (3)
  1. TOPIRAMATE [Suspect]
     Indication: EPILEPSY
  2. ACTH [Concomitant]
     Indication: DNA ANTIBODY
     Route: 030
  3. ACTH [Concomitant]
     Indication: ANTINUCLEAR ANTIBODY
     Route: 030

REACTIONS (2)
  - VASCULAR HEADACHE [None]
  - VASCULITIS [None]
